FAERS Safety Report 15284972 (Version 3)
Quarter: 2018Q3

REPORT INFORMATION
  Report Type: Report from Study
  Country: DE (occurrence: DE)
  Receive Date: 20180816
  Receipt Date: 20180904
  Transmission Date: 20181010
  Serious: Yes (Death, Congenital Anomaly)
  Sender: FDA-Public Use
  Company Number: DE-TEVA-2018-DE-909539

PATIENT

DRUGS (5)
  1. NICOTINE. [Concomitant]
     Active Substance: NICOTINE
     Route: 064
  2. ISOTRETINOIN. [Suspect]
     Active Substance: ISOTRETINOIN
     Dosage: IN THE FIRST TRIMESTER
     Route: 064
  3. ELETRIPTAN. [Suspect]
     Active Substance: ELETRIPTAN
     Indication: MIGRAINE
     Dosage: IN THE THIRD WEEK OF GESTATION
     Route: 064
  4. DROSPIRENONE [Concomitant]
     Active Substance: DROSPIRENONE
     Route: 064
  5. ETHINYLESTRADIOL [Concomitant]
     Active Substance: ETHINYL ESTRADIOL
     Route: 064

REACTIONS (3)
  - Foetal exposure during pregnancy [Fatal]
  - Foetal death [Fatal]
  - Cleft lip and palate [Fatal]
